FAERS Safety Report 8268942-7 (Version None)
Quarter: 2012Q2

REPORT INFORMATION
  Report Type: 
  Country: None (occurrence: None)
  Receive Date: 20120409
  Receipt Date: 20120329
  Transmission Date: 20120825
  Serious: Yes (Hospitalization, Other)
  Sender: FDA-Public Use
  Company Number: US-ACTELION-A-US2012-61993

PATIENT

DRUGS (5)
  1. EPOPROSTENOL SODIUM [Suspect]
     Indication: PULMONARY ARTERIAL HYPERTENSION
     Dosage: 27 NG/KG, PER MIN
     Route: 042
     Dates: start: 20120116
  2. EPOPROSTENOL SODIUM [Suspect]
     Dosage: 13 NG/KG, PER MIN
     Route: 042
     Dates: start: 20120105
  3. TRACLEER [Suspect]
     Indication: PULMONARY ARTERIAL HYPERTENSION
     Dosage: UNK
     Route: 048
     Dates: start: 20111025
  4. EPOPROSTENOL SODIUM [Suspect]
     Dosage: 35 NG/KG, PER MIN
     Route: 042
  5. DIURETICS [Concomitant]

REACTIONS (5)
  - PYREXIA [None]
  - BACTERAEMIA [None]
  - DEVICE RELATED INFECTION [None]
  - CHILLS [None]
  - DRUG INTOLERANCE [None]
